FAERS Safety Report 10248010 (Version 1)
Quarter: 2014Q2

REPORT INFORMATION
  Report Type: Report from Study
  Country: AR (occurrence: AR)
  Receive Date: 20140619
  Receipt Date: 20140619
  Transmission Date: 20141212
  Serious: Yes (Hospitalization, Other)
  Sender: FDA-Public Use
  Company Number: PHHY2014AR076252

PATIENT
  Sex: Male

DRUGS (3)
  1. DIOVAN D [Suspect]
     Indication: HYPERTENSION
     Dosage: 160/12.5MG, DAILY
     Route: 048
  2. DIOVAN D [Suspect]
     Indication: OBESITY
  3. DIOVAN D [Suspect]
     Indication: OFF LABEL USE

REACTIONS (1)
  - Weight decreased [Unknown]
